FAERS Safety Report 5091363-5 (Version None)
Quarter: 2006Q3

REPORT INFORMATION
  Report Type: 
  Country: None (occurrence: None)
  Receive Date: 20060824
  Receipt Date: 20060614
  Transmission Date: 20061208
  Serious: Yes (Other)
  Sender: FDA-Public Use
  Company Number: MAG-2006-0000451

PATIENT
  Age: 46 Year
  Sex: Male

DRUGS (29)
  1. MORPHINE SULFATE [Suspect]
     Indication: CANCER PAIN
     Dosage: SEE IMAGE
     Route: 048
     Dates: start: 20051202, end: 20051204
  2. MORPHINE SULFATE [Suspect]
     Indication: CANCER PAIN
     Dosage: SEE IMAGE
     Route: 048
     Dates: start: 20051205, end: 20051206
  3. MORPHINE SULFATE [Suspect]
     Indication: CANCER PAIN
     Dosage: SEE IMAGE
     Route: 048
     Dates: start: 20051207, end: 20051213
  4. OXYCODONE HCL [Suspect]
     Indication: CANCER PAIN
     Dosage: SEE IMAGE
     Route: 048
     Dates: start: 20051214, end: 20051214
  5. OXYCODONE HCL [Suspect]
     Indication: CANCER PAIN
     Dosage: SEE IMAGE
     Route: 048
     Dates: start: 20051215, end: 20051215
  6. OXYCODONE HCL [Suspect]
     Indication: CANCER PAIN
     Dosage: SEE IMAGE
     Route: 048
     Dates: start: 20051216, end: 20051216
  7. OXYCODONE HCL [Suspect]
     Indication: CANCER PAIN
     Dosage: SEE IMAGE
     Route: 048
     Dates: start: 20051217, end: 20051217
  8. OXYCODONE HCL [Suspect]
     Indication: CANCER PAIN
     Dosage: SEE IMAGE
     Route: 048
     Dates: start: 20051217, end: 20051217
  9. OXYCODONE HCL [Suspect]
     Indication: CANCER PAIN
     Dosage: SEE IMAGE
     Route: 048
     Dates: start: 20051214, end: 20051214
  10. OXYCODONE HCL [Suspect]
     Indication: CANCER PAIN
     Dosage: SEE IMAGE
     Route: 048
     Dates: start: 20051215, end: 20051215
  11. OXYCODONE HCL [Suspect]
     Indication: CANCER PAIN
     Dosage: SEE IMAGE
     Route: 048
     Dates: start: 20051216, end: 20051216
  12. OXYCODONE HCL [Suspect]
     Indication: CANCER PAIN
     Dosage: SEE IMAGE
     Route: 048
     Dates: start: 20051217, end: 20051217
  13. MORPHINE [Suspect]
     Indication: CANCER PAIN
     Dosage: ORAL
     Route: 048
     Dates: start: 20051207, end: 20051214
  14. HYOSCINE HBR HYT [Concomitant]
  15. MAG-LAX (PARAFFIN, LIQUID, MAGNESIUM HYDROXIDE) [Concomitant]
  16. MILMAG (MAGNESIUM HYDROXIDE) [Concomitant]
  17. ALOSENN (TARAXACUM OFFICINALE, SENNA LEAF, SENNA FRUIT, RUBIA ROOT TIN [Concomitant]
  18. CALONAL [Concomitant]
  19. PIPERACILLIN SODIUM [Concomitant]
  20. SODIUM CHLORIDE [Concomitant]
  21. PHYSIO 35 [Concomitant]
  22. SOLITA-T 3G (CARBOHYDRATES NOS, POTASSIUM CHLORIDE, SODIUM CHLORIDE, S [Concomitant]
  23. LACTEC G (SORBITOL, SODIUM LACTATE, SODIUM CHLORIDE, POTASSIUM CHLORID [Concomitant]
  24. HEP-FLUSH (HEPARIN SODIUM) [Concomitant]
  25. MALFA [Concomitant]
  26. FAMOTIDINE [Concomitant]
  27. DORMICUM FOR INJECTION (MIDAZOLAM HYDROCHLORIDE) [Concomitant]
  28. XYLOCAINE [Concomitant]
  29. MYSLEE [Concomitant]

REACTIONS (13)
  - BLOOD BILIRUBIN INCREASED [None]
  - BLOOD CREATININE INCREASED [None]
  - BLOOD UREA INCREASED [None]
  - CONSTIPATION [None]
  - DYSPNOEA [None]
  - GASTROINTESTINAL HAEMORRHAGE [None]
  - HAEMOGLOBIN DECREASED [None]
  - NAUSEA [None]
  - RED BLOOD CELL COUNT DECREASED [None]
  - SOMNOLENCE [None]
  - TUMOUR ASSOCIATED FEVER [None]
  - VOMITING [None]
  - WHITE BLOOD CELL COUNT INCREASED [None]
